FAERS Safety Report 8252949-X (Version None)
Quarter: 2012Q2

REPORT INFORMATION
  Report Type: 
  Country: None (occurrence: None)
  Receive Date: 20120402
  Receipt Date: 20120104
  Transmission Date: 20120825
  Serious: No
  Sender: FDA-Public Use
  Company Number: US-ABBOTT-12P-163-0889093-00

PATIENT
  Sex: Male
  Weight: 102.15 kg

DRUGS (4)
  1. ANDROGEL [Suspect]
     Indication: BLOOD TESTOSTERONE DECREASED
     Dates: start: 20100101, end: 20100101
  2. ANDROGEL [Suspect]
     Indication: BLOOD TESTOSTERONE DECREASED
     Dates: start: 20110101, end: 20111201
  3. ANDROGEL [Suspect]
     Dates: start: 20111201
  4. ANDROGEL [Suspect]
     Dates: start: 20100101, end: 20110101

REACTIONS (1)
  - BLOOD TESTOSTERONE DECREASED [None]
